FAERS Safety Report 11549100 (Version 1)
Quarter: 2015Q3

REPORT INFORMATION
  Report Type: Spontaneous
  Country: US (occurrence: US)
  Receive Date: 20150903
  Receipt Date: 20150903
  Transmission Date: 20151125
  Serious: No
  Sender: FDA-Public Use
  Company Number: US-ELI_LILLY_AND_COMPANY-US201210006397

PATIENT
  Age: 51 Year
  Sex: Female

DRUGS (4)
  1. HUMALOG [Suspect]
     Active Substance: INSULIN LISPRO
     Indication: TYPE 2 DIABETES MELLITUS
     Dosage: UNK, TID
     Route: 065
     Dates: start: 2005
  2. BYETTA [Concomitant]
     Active Substance: EXENATIDE
     Dosage: 10 U, BID
  3. LANTUS [Concomitant]
     Active Substance: INSULIN GLARGINE
     Dosage: 50 U, BID
  4. LANTUS [Concomitant]
     Active Substance: INSULIN GLARGINE
     Dosage: 60 U, BID

REACTIONS (4)
  - Abdominal distension [Unknown]
  - Blood glucose increased [Unknown]
  - Appetite disorder [Unknown]
  - Blood glucose decreased [Unknown]
